FAERS Safety Report 9792038 (Version 3)
Quarter: 2014Q2

REPORT INFORMATION
  Report Type: Spontaneous
  Country: US (occurrence: US)
  Receive Date: 20140102
  Receipt Date: 20140619
  Transmission Date: 20141212
  Serious: Yes (Hospitalization, Other)
  Sender: FDA-Public Use
  Company Number: US-BAYER-2013-158109

PATIENT
  Age: 22 Year
  Sex: Female
  Weight: 52.15 kg

DRUGS (1)
  1. MIRENA [Suspect]
     Indication: CONTRACEPTION
     Dosage: 20 MCG/24HR, CONT
     Route: 015
     Dates: start: 20091023, end: 20111208

REACTIONS (11)
  - Device dislocation [None]
  - Genital haemorrhage [None]
  - Infection [None]
  - Injury [None]
  - Post procedural discomfort [None]
  - Abdominal pain [None]
  - Medical device pain [None]
  - Dyspareunia [None]
  - Coital bleeding [None]
  - Device issue [None]
  - Menorrhagia [None]
